FAERS Safety Report 8756339 (Version 2)
Quarter: 2012Q4

REPORT INFORMATION
  Report Type: Report from Study
  Country: US (occurrence: US)
  Receive Date: 20120828
  Receipt Date: 20121022
  Transmission Date: 20130627
  Serious: No
  Sender: FDA-Public Use
  Company Number: US-009507513-1208USA010389

PATIENT
  Age: 19 Year
  Sex: Female
  Weight: 91.52 kg

DRUGS (1)
  1. IMPLANON [Suspect]
     Dosage: UNK
     Dates: start: 20111207, end: 20120822

REACTIONS (2)
  - Adverse event [Unknown]
  - Complication of device removal [Unknown]
